FAERS Safety Report 7319260-2 (Version None)
Quarter: 2011Q1

REPORT INFORMATION
  Report Type: 
  Country: None (occurrence: None)
  Receive Date: 20110228
  Receipt Date: 20100914
  Transmission Date: 20110831
  Serious: No
  Sender: FDA-Public Use
  Company Number: A0809957A

PATIENT
  Age: 32 Year
  Sex: Female
  Weight: 105.5 kg

DRUGS (2)
  1. LAMICTAL [Suspect]
     Dosage: 200MG AT NIGHT
     Route: 048
     Dates: start: 20030625
  2. UNKNOWN [Concomitant]

REACTIONS (2)
  - LIVE BIRTH [None]
  - DRUG EXPOSURE DURING PREGNANCY [None]
